FAERS Safety Report 18197714 (Version 6)
Quarter: 2023Q2

REPORT INFORMATION
  Report Type: Spontaneous
  Country: US (occurrence: US)
  Receive Date: 20200826
  Receipt Date: 20230414
  Transmission Date: 20230722
  Serious: Yes (Hospitalization, Other)
  Sender: FDA-Public Use
  Company Number: US-PFIZER INC-2020328199

PATIENT
  Age: 62 Year
  Sex: Female
  Weight: 45.351 kg

DRUGS (1)
  1. IBRANCE [Suspect]
     Active Substance: PALBOCICLIB
     Indication: Breast cancer female
     Dosage: 100 MG
     Dates: start: 201508

REACTIONS (7)
  - Weight decreased [Recovered/Resolved]
  - Tooth extraction [Unknown]
  - Neoplasm progression [Recovered/Resolved]
  - Memory impairment [Recovered/Resolved]
  - Gastric disorder [Unknown]
  - Nausea [Unknown]
  - Aphonia [Unknown]

NARRATIVE: CASE EVENT DATE: 20230411
